FAERS Safety Report 4527165-5 (Version None)
Quarter: 2004Q4

REPORT INFORMATION
  Report Type: 
  Country: None (occurrence: None)
  Receive Date: 20041126
  Receipt Date: 20040525
  Transmission Date: 20050328
  Serious: Yes (Other)
  Sender: FDA-Public Use
  Company Number: 2004212905US

PATIENT
  Age: 77 Year
  Sex: Female

DRUGS (6)
  1. ZYVOX [Suspect]
     Dates: start: 20030101
  2. PROCRIT [Suspect]
     Indication: ANAEMIA
     Dates: start: 20030101
  3. PROCRIT [Suspect]
     Dosage: 40000 IU, WEEKLY, SUBCUTANEOUS
     Route: 058
     Dates: start: 20040301
  4. COUMADIN [Concomitant]
  5. DIGOXIN [Concomitant]
  6. BACTRIM [Concomitant]

REACTIONS (1)
  - NEUROPATHY PERIPHERAL [None]
